FAERS Safety Report 6001710-5 (Version None)
Quarter: 2008Q4

REPORT INFORMATION
  Report Type: 
  Country: None (occurrence: None)
  Receive Date: 20081215
  Receipt Date: 20081201
  Transmission Date: 20090506
  Serious: No
  Sender: FDA-Public Use
  Company Number: US-B.I. PHARMACEUTICALS,INC./RIDGEFIELD-2008-BP-18067BP

PATIENT
  Age: 15 Year
  Sex: Female

DRUGS (1)
  1. ZANTAC 75 [Suspect]
     Indication: ABDOMINAL PAIN UPPER
     Dosage: 75MG
     Route: 048
     Dates: start: 20081201

REACTIONS (1)
  - FEELING JITTERY [None]
